FAERS Safety Report 5739514-0 (Version None)
Quarter: 2008Q2

REPORT INFORMATION
  Report Type: 
  Country: None (occurrence: None)
  Receive Date: 20080515
  Receipt Date: 20080506
  Transmission Date: 20081010
  Serious: Yes (Hospitalization, Other)
  Sender: FDA-Public Use
  Company Number: US-PFIZER INC-2008008986

PATIENT
  Sex: Female
  Weight: 86.2 kg

DRUGS (22)
  1. CHANTIX [Suspect]
     Indication: SMOKING CESSATION THERAPY
     Dates: start: 20080101, end: 20080101
  2. NEURONTIN [Suspect]
  3. TEGRETOL [Concomitant]
  4. MELLARIL [Concomitant]
  5. ATIVAN [Concomitant]
  6. ALL OTHER THERAPEUTIC PRODUCTS [Concomitant]
  7. TUMS [Concomitant]
  8. COLACE [Concomitant]
  9. BENADRYL [Concomitant]
  10. CYCLOSPORINE [Concomitant]
  11. LIPITOR [Concomitant]
  12. ALBUTEROL [Concomitant]
  13. ROBITUSSIN-DM [Concomitant]
  14. LIDODERM [Concomitant]
  15. PROTONIX [Concomitant]
  16. MYLANTA [Concomitant]
  17. TYLENOL [Concomitant]
  18. COMBIVENT [Concomitant]
  19. BACLOFEN [Concomitant]
  20. CAPSAICIN [Concomitant]
  21. PHOSPHO-SODA [Concomitant]
  22. EUCERIN [Concomitant]

REACTIONS (15)
  - BRONCHITIS [None]
  - CENTRAL NERVOUS SYSTEM INFECTION [None]
  - CYSTITIS [None]
  - DEPRESSED MOOD [None]
  - DRUG HYPERSENSITIVITY [None]
  - ELECTROENCEPHALOGRAM ABNORMAL [None]
  - ENCEPHALOPATHY [None]
  - HALLUCINATION [None]
  - INAPPROPRIATE AFFECT [None]
  - MENTAL DISORDER [None]
  - OVERDOSE [None]
  - PARANOIA [None]
  - REFUSAL OF TREATMENT BY PATIENT [None]
  - SUICIDAL IDEATION [None]
  - VISUAL ACUITY REDUCED [None]
